FAERS Safety Report 24262804 (Version 1)
Quarter: 2024Q3

REPORT INFORMATION
  Report Type: Spontaneous
  Country: IN (occurrence: IN)
  Receive Date: 20240829
  Receipt Date: 20240829
  Transmission Date: 20241016
  Serious: Yes (Hospitalization)
  Sender: MYLAN
  Company Number: IN-MYLANLABS-2024M1078999

PATIENT
  Age: 34 Year
  Sex: Male

DRUGS (18)
  1. AMLODIPINE [Suspect]
     Active Substance: AMLODIPINE BESYLATE
     Indication: Retinopathy hypertensive
     Dosage: 5 MILLIGRAM, BID
     Route: 065
  2. AMLODIPINE [Suspect]
     Active Substance: AMLODIPINE BESYLATE
     Indication: Renovascular hypertension
  3. RAMIPRIL [Suspect]
     Active Substance: RAMIPRIL
     Indication: Retinopathy hypertensive
     Dosage: 10 MILLIGRAM, BID
     Route: 065
  4. RAMIPRIL [Suspect]
     Active Substance: RAMIPRIL
     Indication: Renovascular hypertension
  5. ALISKIREN [Suspect]
     Active Substance: ALISKIREN
     Indication: Retinopathy hypertensive
     Dosage: 150 MILLIGRAM, BID
     Route: 065
  6. ALISKIREN [Suspect]
     Active Substance: ALISKIREN
     Indication: Renovascular hypertension
  7. FUROSEMIDE [Suspect]
     Active Substance: FUROSEMIDE
     Indication: Retinopathy hypertensive
     Dosage: 80 MILLIGRAM, BID
     Route: 065
  8. FUROSEMIDE [Suspect]
     Active Substance: FUROSEMIDE
     Indication: Renovascular hypertension
  9. SPIRONOLACTONE [Suspect]
     Active Substance: SPIRONOLACTONE
     Indication: Retinopathy hypertensive
     Dosage: 50 MILLIGRAM, BID
     Route: 065
  10. SPIRONOLACTONE [Suspect]
     Active Substance: SPIRONOLACTONE
     Indication: Renovascular hypertension
  11. CLONIDINE [Suspect]
     Active Substance: CLONIDINE
     Indication: Retinopathy hypertensive
     Dosage: 0.2 MILLIGRAM, BID
     Route: 065
  12. CLONIDINE [Suspect]
     Active Substance: CLONIDINE
     Indication: Renovascular hypertension
  13. PRAZOSIN [Suspect]
     Active Substance: PRAZOSIN\PRAZOSIN HYDROCHLORIDE
     Indication: Retinopathy hypertensive
     Dosage: 5 MILLIGRAM, BID
     Route: 065
  14. PRAZOSIN [Suspect]
     Active Substance: PRAZOSIN\PRAZOSIN HYDROCHLORIDE
     Indication: Renovascular hypertension
  15. METOPROLOL [Suspect]
     Active Substance: METOPROLOL
     Indication: Retinopathy hypertensive
     Dosage: 100 MILLIGRAM, BID
     Route: 065
  16. METOPROLOL [Suspect]
     Active Substance: METOPROLOL
     Indication: Renovascular hypertension
  17. MINOXIDIL [Suspect]
     Active Substance: MINOXIDIL
     Indication: Retinopathy hypertensive
     Dosage: 5 MILLIGRAM, BID
     Route: 065
  18. MINOXIDIL [Suspect]
     Active Substance: MINOXIDIL
     Indication: Renovascular hypertension

REACTIONS (1)
  - Drug ineffective [Unknown]
